FAERS Safety Report 4459830-2 (Version None)
Quarter: 2004Q3

REPORT INFORMATION
  Report Type: 
  Country: None (occurrence: None)
  Receive Date: 20040927
  Receipt Date: 20040914
  Transmission Date: 20050211
  Serious: Yes (Hospitalization)
  Sender: FDA-Public Use
  Company Number: PERI00204003442

PATIENT
  Age: 83 Year
  Sex: Male
  Weight: 70 kg

DRUGS (1)
  1. COVERSYL (PERINDOPRIL) [Suspect]
     Indication: CEREBROVASCULAR ACCIDENT PROPHYLAXIS
     Dosage: 2 MG DAILY PO
     Route: 048
     Dates: start: 20020701, end: 20020701

REACTIONS (3)
  - ECZEMA [None]
  - LYMPHOPENIA [None]
  - PEMPHIGOID [None]
